FAERS Safety Report 16384006 (Version 1)
Quarter: 2019Q2

REPORT INFORMATION
  Report Type: Spontaneous
  Country: DE (occurrence: DE)
  Receive Date: 20190603
  Receipt Date: 20190603
  Transmission Date: 20190711
  Serious: Yes (Hospitalization)
  Sender: FDA-Public Use
  Company Number: DE-PFIZER INC-2019228424

PATIENT
  Age: 73 Year
  Sex: Female

DRUGS (22)
  1. REMERGIL [Suspect]
     Active Substance: MIRTAZAPINE
     Dosage: 45 MG, 1X/DAY
  2. FOLSAN [Concomitant]
     Active Substance: FOLIC ACID
     Dosage: 5 MG, 1X/DAY
  3. HALDOL [Concomitant]
     Active Substance: HALOPERIDOL
     Dosage: 7.5 MG, 1X/DAY
     Dates: start: 20061205
  4. DIAZEPAM. [Concomitant]
     Active Substance: DIAZEPAM
     Dosage: 4 MG, 1X/DAY
     Dates: start: 20061115, end: 20061119
  5. VENLAFAXINE HCL [Suspect]
     Active Substance: VENLAFAXINE HYDROCHLORIDE
     Dosage: 225 MG, 1X/DAY
     Dates: start: 20061116, end: 20061122
  6. DIAZEPAM. [Concomitant]
     Active Substance: DIAZEPAM
     Dosage: 2 MG, 1X/DAY
     Dates: start: 20061120, end: 20061121
  7. VENLAFAXINE HCL [Suspect]
     Active Substance: VENLAFAXINE HYDROCHLORIDE
     Dosage: 75 MG, 1X/DAY
     Dates: start: 20061109, end: 20061113
  8. VENLAFAXINE HCL [Suspect]
     Active Substance: VENLAFAXINE HYDROCHLORIDE
     Dosage: 300 MG, 1X/DAY
     Dates: start: 20061123, end: 20061205
  9. PANTOPRAZOL [PANTOPRAZOLE] [Concomitant]
     Active Substance: PANTOPRAZOLE
     Dosage: 20 MG, 1X/DAY
  10. KALINOR [POTASSIUM CHLORIDE] [Concomitant]
     Dosage: 1 DF, 1X/DAY
  11. HALDOL [Concomitant]
     Active Substance: HALOPERIDOL
     Dosage: 5 MG, 1X/DAY
     Dates: start: 20061210, end: 20061217
  12. VENLAFAXINE HCL [Suspect]
     Active Substance: VENLAFAXINE HYDROCHLORIDE
     Dosage: 150 MG, 1X/DAY
     Dates: start: 20061114, end: 20061115
  13. EUNERPAN [Suspect]
     Active Substance: MELPERONE HYDROCHLORIDE
     Dosage: 100 MG, 1X/DAY
     Dates: start: 20061121, end: 20061204
  14. EUNERPAN [Suspect]
     Active Substance: MELPERONE HYDROCHLORIDE
     Dosage: 125 MG, 1X/DAY
     Dates: start: 20061205
  15. DIAZEPAM. [Concomitant]
     Active Substance: DIAZEPAM
     Dosage: 5 MG, 1X/DAY
     Dates: start: 20061102, end: 20061114
  16. ZYPREXA [Suspect]
     Active Substance: OLANZAPINE
     Dosage: 10 MG, 1X/DAY
     Dates: start: 20061114, end: 20061205
  17. MOVICOL [Concomitant]
     Active Substance: POLYETHYLENE GLYCOL 3350\POTASSIUM CHLORIDE\SODIUM BICARBONATE\SODIUM CHLORIDE
     Dosage: UNK
  18. HALDOL [Concomitant]
     Active Substance: HALOPERIDOL
     Dosage: 7.5 MG, 1X/DAY
     Dates: start: 20061207, end: 20061207
  19. CONCOR [Concomitant]
     Active Substance: BISOPROLOL FUMARATE
     Dosage: 2.5 MG, 1X/DAY
  20. ASPIRIN. [Concomitant]
     Active Substance: ASPIRIN
     Dosage: 100 MG, 1X/DAY
  21. HALDOL [Concomitant]
     Active Substance: HALOPERIDOL
     Dosage: 10 MG, 1X/DAY
     Dates: start: 20061206
  22. DIAZEPAM. [Concomitant]
     Active Substance: DIAZEPAM
     Dosage: 1 MG, 1X/DAY
     Dates: start: 20061122, end: 20061126

REACTIONS (5)
  - Hallucination, visual [Recovered/Resolved]
  - Brief psychotic disorder with marked stressors [Recovered/Resolved]
  - Confusional state [Recovered/Resolved]
  - Psychomotor hyperactivity [Recovered/Resolved]
  - Disorientation [Recovered/Resolved]

NARRATIVE: CASE EVENT DATE: 20061205
